FAERS Safety Report 22139387 (Version 2)
Quarter: 2023Q2

REPORT INFORMATION
  Report Type: Spontaneous
  Country: FR (occurrence: FR)
  Receive Date: 20230327
  Receipt Date: 20230426
  Transmission Date: 20230722
  Serious: Yes (Death, Hospitalization)
  Sender: FDA-Public Use
  Company Number: None

PATIENT
  Age: 78 Year
  Sex: Male
  Weight: 73 kg

DRUGS (4)
  1. HYDROXYUREA [Suspect]
     Active Substance: HYDROXYUREA
     Indication: Polycythaemia vera
     Dosage: DAILY DOSE: 2 DOSAGE FORM
     Route: 048
     Dates: start: 20180501, end: 20230124
  2. ASPIRIN\CLOPIDOGREL [Concomitant]
     Active Substance: ASPIRIN\CLOPIDOGREL
     Indication: Cardiovascular event prophylaxis
     Dosage: DAILY DOSE: 1 DOSAGE FORM
     Route: 048
  3. LANSOPRAZOLE [Concomitant]
     Active Substance: LANSOPRAZOLE
     Indication: Drug toxicity prophylaxis
     Dosage: GASTRORESISTANT MICROGRANULES IN CAPSULES?DAILY DOSE: 1 DOSAGE FORM
     Route: 048
     Dates: start: 20221226
  4. Tamsulosin arrow lp [Concomitant]
     Indication: Product used for unknown indication
     Dosage: SUSTAINED-RELEASE CAPSULE?DAILY DOSE: 1 DOSAGE FORM
     Route: 048

REACTIONS (8)
  - Abdominal pain [Not Recovered/Not Resolved]
  - Diarrhoea [Not Recovered/Not Resolved]
  - Confusional state [Not Recovered/Not Resolved]
  - Headache [Not Recovered/Not Resolved]
  - Fatigue [Not Recovered/Not Resolved]
  - Vertigo [Not Recovered/Not Resolved]
  - Pancytopenia [Fatal]
  - Acute myeloid leukaemia [Fatal]

NARRATIVE: CASE EVENT DATE: 20221226
